FAERS Safety Report 13177089 (Version 1)
Quarter: 2017Q1

REPORT INFORMATION
  Report Type: Report from Study
  Country: US (occurrence: US)
  Receive Date: 20170201
  Receipt Date: 20170201
  Transmission Date: 20170428
  Serious: No
  Sender: FDA-Public Use
  Company Number: US-EXELIXIS-CABO-16007080

PATIENT
  Sex: Male

DRUGS (7)
  1. COMETRIQ [Suspect]
     Active Substance: CABOZANTINIB S-MALATE
     Dosage: 80 MG, QD
     Route: 048
     Dates: start: 20160915
  2. LIDOCAINE VISCOUS [Concomitant]
     Active Substance: LIDOCAINE HYDROCHLORIDE
  3. COMETRIQ [Suspect]
     Active Substance: CABOZANTINIB S-MALATE
     Indication: THYROID CANCER
     Dosage: 140 MG, QD
     Route: 048
     Dates: start: 20160815, end: 20160908
  4. OXYCODONE [Concomitant]
     Active Substance: OXYCODONE
  5. DECADRON [Concomitant]
     Active Substance: DEXAMETHASONE
  6. XARELTO [Concomitant]
     Active Substance: RIVAROXABAN
  7. MS CONTIN [Concomitant]
     Active Substance: MORPHINE SULFATE

REACTIONS (6)
  - Mucosal inflammation [Unknown]
  - Stomatitis [Unknown]
  - Dry mouth [Unknown]
  - Rash [Unknown]
  - Dysphagia [Unknown]
  - Abdominal pain upper [Unknown]
